FAERS Safety Report 6009940-3 (Version None)
Quarter: 2008Q4

REPORT INFORMATION
  Report Type: 
  Country: None (occurrence: None)
  Receive Date: 20081218
  Receipt Date: 20081203
  Transmission Date: 20090506
  Serious: Yes (Other)
  Sender: FDA-Public Use
  Company Number: DE-BAYER-DE-2006-034881

PATIENT
  Age: 56 Year
  Sex: Female
  Weight: 60 kg

DRUGS (18)
  1. MAGNEVIST [Suspect]
     Indication: NUCLEAR MAGNETIC RESONANCE IMAGING
     Dosage: UNIT DOSE: 20 ML
     Route: 042
     Dates: start: 20061024, end: 20061024
  2. NEXIUM [Concomitant]
     Indication: DRUG USE FOR UNKNOWN INDICATION
     Dosage: UNIT DOSE: 40 MG
  3. HERZASS ^RATIOPHARM^ [Concomitant]
     Indication: DRUG USE FOR UNKNOWN INDICATION
     Dosage: UNIT DOSE: 100 MG
  4. SODIUM BICARBONATE [Concomitant]
     Indication: DRUG USE FOR UNKNOWN INDICATION
  5. ISOSORBIDE DINITRATE [Concomitant]
     Indication: DRUG USE FOR UNKNOWN INDICATION
     Dosage: UNIT DOSE: 20 MG
  6. CALCIUM ACETATE [Concomitant]
     Indication: DRUG USE FOR UNKNOWN INDICATION
  7. TOREM /GFR/ [Concomitant]
  8. ENALAPRIL MALEATE [Concomitant]
     Indication: DRUG USE FOR UNKNOWN INDICATION
     Dosage: UNIT DOSE: 25 MG
  9. NITREPRESS [Concomitant]
     Dosage: UNIT DOSE: 20 MG
  10. CYNT [Concomitant]
  11. CARVEDILOL [Concomitant]
     Indication: DRUG USE FOR UNKNOWN INDICATION
     Dosage: UNIT DOSE: 12.5 MG
  12. THYRONAJOD [Concomitant]
     Indication: DRUG USE FOR UNKNOWN INDICATION
  13. SIMVASTATIN [Concomitant]
     Indication: DRUG USE FOR UNKNOWN INDICATION
     Dosage: UNIT DOSE: 10 MG
  14. MIMPARA NOS [Concomitant]
     Dosage: UNIT DOSE: 90 MG
  15. BONDIOL [Concomitant]
     Indication: DRUG USE FOR UNKNOWN INDICATION
     Dosage: UNIT DOSE: 1 ?G
     Dates: end: 20060322
  16. FERRLECIT /GFR/ [Concomitant]
     Indication: DRUG USE FOR UNKNOWN INDICATION
  17. DEKRISTOL [Concomitant]
     Indication: DRUG USE FOR UNKNOWN INDICATION
     Dosage: UNIT DOSE: 20000 IU
  18. ARANESP [Concomitant]
     Indication: DRUG USE FOR UNKNOWN INDICATION
     Dosage: UNIT DOSE: 20 ?G

REACTIONS (7)
  - ACUTE PHASE REACTION [None]
  - ANOREXIA [None]
  - CHILLS [None]
  - LEUKOCYTOSIS [None]
  - LYMPHOPENIA [None]
  - PYREXIA [None]
  - VOMITING [None]
